FAERS Safety Report 5382766-X (Version None)
Quarter: 2007Q3

REPORT INFORMATION
  Report Type: 
  Country: None (occurrence: None)
  Receive Date: 20070705
  Receipt Date: 20070626
  Transmission Date: 20080115
  Serious: Yes (Hospitalization, Other)
  Sender: FDA-Public Use
  Company Number: 2007SP010544

PATIENT
  Age: 44 Year
  Sex: Male
  Weight: 43.0917 kg

DRUGS (7)
  1. PEG-INTRON [Suspect]
     Indication: HEPATITIS C
     Dosage: 96 MCG; SC
     Route: 058
     Dates: start: 20070404, end: 20070430
  2. PEG-INTRON [Suspect]
  3. REBETOL [Suspect]
     Indication: HEPATITIS C
     Dosage: 800 MG
     Dates: start: 20070404, end: 20070430
  4. PREDNISONE (CON.) [Concomitant]
  5. LANTUS (CON.) [Concomitant]
  6. PROGRAT (CON.) [Concomitant]
  7. CELLCEPT (CON.) [Concomitant]

REACTIONS (3)
  - DIABETIC COMA [None]
  - DIABETIC KETOACIDOSIS [None]
  - PANCREATITIS ACUTE [None]
